FAERS Safety Report 10525177 (Version 4)
Quarter: 2016Q3

REPORT INFORMATION
  Report Type: Spontaneous
  Country: US (occurrence: US)
  Receive Date: 20141017
  Receipt Date: 20160810
  Transmission Date: 20161109
  Serious: Yes (Hospitalization)
  Sender: FDA-Public Use
  Company Number: US-GLAXOSMITHKLINE-US2014GSK007261

PATIENT
  Age: 48 Year
  Sex: Female

DRUGS (6)
  1. FLOLAN [Suspect]
     Active Substance: EPOPROSTENOL SODIUM
     Indication: ATRIAL SEPTAL DEFECT
     Dosage: UNK
  2. FLOLAN [Suspect]
     Active Substance: EPOPROSTENOL SODIUM
     Indication: PULMONARY HYPERTENSION
     Dosage: 36NG/KG/MIN (CONCENTRATION 45,000 NG/ML, PUMP RATE 94 ML/DAY, VIAL STRENGTH 1.5 MG), CO
     Route: 042
  3. FLOLAN [Suspect]
     Active Substance: EPOPROSTENOL SODIUM
     Indication: COR PULMONALE CHRONIC
     Dosage: UNK, CO
     Route: 042
     Dates: start: 20040526
  4. FLOLAN [Suspect]
     Active Substance: EPOPROSTENOL SODIUM
     Indication: PULMONARY HYPERTENSION
  5. WARFARIN [Concomitant]
     Active Substance: WARFARIN
  6. FLOLAN [Suspect]
     Active Substance: EPOPROSTENOL SODIUM
     Dosage: 36 NG/KG/MIN, CONTINUOUSLY
     Dates: start: 20040526

REACTIONS (5)
  - Feeling abnormal [Unknown]
  - Abdominal discomfort [Unknown]
  - Product quality issue [Unknown]
  - Complication associated with device [Unknown]
  - Medical device change [Unknown]

NARRATIVE: CASE EVENT DATE: 20141003
